FAERS Safety Report 16037202 (Version 1)
Quarter: 2019Q1

REPORT INFORMATION
  Report Type: Spontaneous
  Country: AT (occurrence: AT)
  Receive Date: 20190305
  Receipt Date: 20190305
  Transmission Date: 20190418
  Serious: Yes (Other)
  Sender: FDA-Public Use
  Company Number: AT-AMNEAL PHARMACEUTICALS-2019AMN00229

PATIENT
  Age: 30 Year
  Sex: Female
  Weight: 114 kg

DRUGS (2)
  1. CLOZAPINE. [Suspect]
     Active Substance: CLOZAPINE
     Indication: SCHIZOPHRENIA
     Dosage: 400 MG
  2. RISPERIDONE. [Suspect]
     Active Substance: RISPERIDONE
     Indication: SCHIZOPHRENIA
     Dosage: 8 MG, 1X/DAY

REACTIONS (2)
  - Suicidal behaviour [Recovered/Resolved]
  - Depression suicidal [Recovered/Resolved]
